FAERS Safety Report 7368919-X (Version None)
Quarter: 2011Q1

REPORT INFORMATION
  Report Type: 
  Country: None (occurrence: None)
  Receive Date: 20110321
  Receipt Date: 20110321
  Transmission Date: 20110831
  Serious: Yes (Hospitalization)
  Sender: FDA-Public Use
  Company Number: None

PATIENT
  Age: 74 Year
  Sex: Male
  Weight: 63 kg

DRUGS (2)
  1. WARFARIN SODIUM [Suspect]
     Indication: PULMONARY EMBOLISM
     Dates: start: 20090824
  2. WARFARIN SODIUM [Suspect]
     Indication: DEEP VEIN THROMBOSIS
     Dates: start: 20090824

REACTIONS (5)
  - NAUSEA [None]
  - URINE OUTPUT DECREASED [None]
  - HAEMATURIA [None]
  - VOMITING [None]
  - INTERNATIONAL NORMALISED RATIO INCREASED [None]
